FAERS Safety Report 26100209 (Version 1)
Quarter: 2025Q4

REPORT INFORMATION
  Report Type: Spontaneous
  Country: CN (occurrence: CN)
  Receive Date: 20251128
  Receipt Date: 20251128
  Transmission Date: 20260118
  Serious: Yes (Hospitalization, Other)
  Sender: AZURITY PHARMACEUTICALS
  Company Number: CN-AZURITY PHARMACEUTICALS, INC.-AZR202511-003562

PATIENT
  Age: 29 Year
  Sex: Male
  Weight: 85 kg

DRUGS (3)
  1. EDARBI [Suspect]
     Active Substance: AZILSARTAN KAMEDOXOMIL
     Indication: Blood pressure abnormal
     Dosage: 40 MILLIGRAM, QD
     Route: 048
     Dates: start: 20251103, end: 20251110
  2. BISOPROLOL FUMARATE [Concomitant]
     Active Substance: BISOPROLOL FUMARATE
     Indication: Hypertension
     Dosage: UNK
     Route: 065
     Dates: start: 20251103, end: 20251110
  3. Compound reserpine and triamterene [Concomitant]
     Indication: Blood pressure abnormal
     Dosage: 0.5 TABLET
     Route: 065
     Dates: start: 20251105, end: 20251110

REACTIONS (3)
  - Renal impairment [Recovering/Resolving]
  - Vomiting [Recovering/Resolving]
  - Nausea [Recovering/Resolving]

NARRATIVE: CASE EVENT DATE: 20251110
